FAERS Safety Report 7311997-4 (Version None)
Quarter: 2011Q1

REPORT INFORMATION
  Report Type: 
  Country: None (occurrence: None)
  Receive Date: 20110214
  Receipt Date: 20110124
  Transmission Date: 20110831
  Serious: Yes (Life-Threatening, Hospitalization)
  Sender: FDA-Public Use
  Company Number: AUR-APL-2010-03013

PATIENT
  Age: 30 Year
  Sex: Female

DRUGS (3)
  1. AMIODARONE [Suspect]
  2. METOPROLOL [Suspect]
  3. DILTIAZEM [Suspect]

REACTIONS (8)
  - CONFUSIONAL STATE [None]
  - ANURIA [None]
  - CARDIOGENIC SHOCK [None]
  - HYPERTROPHIC CARDIOMYOPATHY [None]
  - HYPOTENSION [None]
  - DRUG INEFFECTIVE [None]
  - MULTIPLE DRUG OVERDOSE [None]
  - ABDOMINAL PAIN LOWER [None]
